FAERS Safety Report 15017691 (Version 1)
Quarter: 2018Q2

REPORT INFORMATION
  Report Type: Spontaneous
  Country: US (occurrence: US)
  Receive Date: 20180531
  Receipt Date: 20180531
  Transmission Date: 20180711
  Serious: No
  Sender: FDA-Public Use
  Company Number: None

PATIENT
  Age: 31 Year
  Sex: Female

DRUGS (1)
  1. MYLAN ESTROGEN PATCH [Suspect]
     Active Substance: ESTRADIOL
     Indication: MENOPAUSE
     Dosage: ?          OTHER FREQUENCY:QWEEK;?
     Route: 062
     Dates: start: 20180404, end: 20180523

REACTIONS (2)
  - Product adhesion issue [None]
  - Medical device site irritation [None]

NARRATIVE: CASE EVENT DATE: 20180523
